FAERS Safety Report 5820977-7 (Version None)
Quarter: 2008Q3

REPORT INFORMATION
  Report Type: 
  Country: None (occurrence: None)
  Receive Date: 20080724
  Receipt Date: 20080717
  Transmission Date: 20090109
  Serious: Yes (Hospitalization)
  Sender: FDA-Public Use
  Company Number: JP-AVENTIS-200811895JP

PATIENT
  Age: 74 Year
  Sex: Female
  Weight: 54 kg

DRUGS (7)
  1. ENOXAPARIN SODIUM [Suspect]
     Route: 058
     Dates: start: 20080606, end: 20080607
  2. ENOXAPARIN SODIUM [Suspect]
     Route: 058
     Dates: start: 20080606, end: 20080607
  3. MAINTATE [Concomitant]
     Indication: ARRHYTHMIA
     Route: 048
  4. FAMOTIDINE [Concomitant]
     Indication: GASTRIC ULCER
     Route: 048
  5. ALENDRONATE SODIUM [Concomitant]
     Indication: OSTEOPOROSIS
     Route: 048
     Dates: start: 20080608
  6. PRAVASTATIN [Concomitant]
     Route: 048
  7. CONIEL [Concomitant]
     Indication: HYPERTENSION
     Route: 048

REACTIONS (2)
  - CARDIAC FAILURE CONGESTIVE [None]
  - HEPARIN-INDUCED THROMBOCYTOPENIA [None]
